FAERS Safety Report 7948749-8 (Version None)
Quarter: 2011Q4

REPORT INFORMATION
  Report Type: 
  Country: None (occurrence: None)
  Receive Date: 20111130
  Receipt Date: 20111121
  Transmission Date: 20120403
  Serious: Yes (Hospitalization, Other)
  Sender: FDA-Public Use
  Company Number: JP-B.I. PHARMACEUTICALS,INC./RIDGEFIELD-2011-BP-23456NB

PATIENT
  Sex: Female

DRUGS (5)
  1. AMARYL [Concomitant]
     Indication: DIABETES MELLITUS
     Dosage: 0.5 MG
     Route: 048
     Dates: start: 20110610, end: 20110801
  2. PRADAXA [Suspect]
     Indication: CEREBRAL INFARCTION
     Dosage: 220 MG
     Route: 048
     Dates: start: 20110525, end: 20111004
  3. CRESTOR [Concomitant]
     Indication: HYPERLIPIDAEMIA
     Dosage: 2.5 MG
     Route: 048
     Dates: start: 20110525, end: 20110801
  4. LANSOPRAZOLE [Concomitant]
     Indication: GASTRIC ULCER
     Dosage: 15 MG
     Route: 048
     Dates: start: 20110525, end: 20110801
  5. CELECOXIB [Concomitant]
     Indication: PAIN
     Dosage: 100 MG
     Route: 048
     Dates: start: 20110525, end: 20110801

REACTIONS (11)
  - INTERNATIONAL NORMALISED RATIO ABNORMAL [None]
  - CONVULSION [None]
  - MELAENA [None]
  - VOMITING [None]
  - ACTIVATED PARTIAL THROMBOPLASTIN TIME PROLONGED [None]
  - HYPOKALAEMIA [None]
  - ASPARTATE AMINOTRANSFERASE ABNORMAL [None]
  - HEADACHE [None]
  - BLOOD PRESSURE INCREASED [None]
  - ALANINE AMINOTRANSFERASE ABNORMAL [None]
  - DIARRHOEA [None]
